FAERS Safety Report 17383873 (Version 1)
Quarter: 2020Q1

REPORT INFORMATION
  Report Type: Spontaneous
  Country: US (occurrence: US)
  Receive Date: 20200206
  Receipt Date: 20200206
  Transmission Date: 20200409
  Serious: Yes (Hospitalization, Other)
  Sender: FDA-Public Use
  Company Number: US-ABBVIE-19K-163-2863750-00

PATIENT

DRUGS (3)
  1. XELJANZ XR [Suspect]
     Active Substance: TOFACITINIB CITRATE
     Indication: RHEUMATOID ARTHRITIS
     Route: 048
     Dates: start: 20190520, end: 20190706
  2. HUMIRA [Suspect]
     Active Substance: ADALIMUMAB
     Indication: PRODUCT USED FOR UNKNOWN INDICATION
     Route: 058
     Dates: start: 2014, end: 2019
  3. HUMIRA [Suspect]
     Active Substance: ADALIMUMAB
     Route: 058
     Dates: start: 2019, end: 201905

REACTIONS (11)
  - Pain [Unknown]
  - Condition aggravated [Unknown]
  - Urinary tract infection [Unknown]
  - Fatigue [Unknown]
  - Drug ineffective [Unknown]
  - Restless legs syndrome [Unknown]
  - Osteoarthritis [Unknown]
  - Fibromyalgia [Unknown]
  - Swelling [Recovering/Resolving]
  - Neck surgery [Unknown]
  - Neck surgery [Unknown]

NARRATIVE: CASE EVENT DATE: 2019
